FAERS Safety Report 8015716-8 (Version None)
Quarter: 2011Q4

REPORT INFORMATION
  Report Type: 
  Country: None (occurrence: None)
  Receive Date: 20111230
  Receipt Date: 20111229
  Transmission Date: 20120403
  Serious: Yes (Life-Threatening, Hospitalization)
  Sender: FDA-Public Use
  Company Number: PHHY2011IL113300

PATIENT
  Age: 66 Year
  Sex: Female
  Weight: 65 kg

DRUGS (1)
  1. ZOLEDRONOC ACID [Suspect]
     Indication: OSTEOPOROSIS
     Dosage: 5 MG/100 ML
     Route: 042
     Dates: start: 20110127

REACTIONS (7)
  - ENDOCRINE DISORDER [None]
  - MUSCLE CONTRACTURE [None]
  - ANAPHYLACTIC SHOCK [None]
  - DIZZINESS [None]
  - MYALGIA [None]
  - COLD SWEAT [None]
  - BLOOD CREATINE PHOSPHOKINASE INCREASED [None]
